FAERS Safety Report 16103303 (Version 1)
Quarter: 2019Q1

REPORT INFORMATION
  Report Type: Spontaneous
  Country: IT (occurrence: IT)
  Receive Date: 20190322
  Receipt Date: 20190322
  Transmission Date: 20190418
  Serious: Yes (Other)
  Sender: FDA-Public Use
  Company Number: IT-SUN PHARMACEUTICAL INDUSTRIES LTD-2019R1-202501

PATIENT
  Age: 59 Year
  Sex: Female

DRUGS (2)
  1. LIPOSOMAL DOXORUBICIN [Suspect]
     Active Substance: DOXORUBICIN HYDROCHLORIDE
     Indication: CHONDROSARCOMA
     Dosage: TWO CYCLES (NON-PEGYLATED LIPOSOMAL DOXORUBICIN)
     Route: 065
  2. IFOSFAMIDE. [Suspect]
     Active Substance: IFOSFAMIDE
     Indication: CHONDROSARCOMA
     Dosage: TWO CYCLES
     Route: 065

REACTIONS (2)
  - Disease progression [Unknown]
  - Lung disorder [Unknown]
